FAERS Safety Report 4418045-4 (Version None)
Quarter: 2004Q3

REPORT INFORMATION
  Report Type: 
  Country: None (occurrence: None)
  Receive Date: 20040803
  Receipt Date: 20040721
  Transmission Date: 20050211
  Serious: Yes (Death, Life-Threatening)
  Sender: FDA-Public Use
  Company Number: 2004032346

PATIENT
  Age: 23 Year
  Sex: Male
  Weight: 62 kg

DRUGS (5)
  1. VFEND [Suspect]
     Indication: PROPHYLAXIS
     Dosage: 400 MG (200 MG, 2 IN 1 D), ORAL
     Route: 048
     Dates: start: 20031220, end: 20040506
  2. OMEPRAZOLE [Concomitant]
  3. BACTRIM [Concomitant]
  4. FERROUS SULFATE TAB [Concomitant]
  5. DARBEPOETIN ALFA [Concomitant]

REACTIONS (5)
  - HYPOGAMMAGLOBULINAEMIA [None]
  - INFECTION IN AN IMMUNOCOMPROMISED HOST [None]
  - LYMPHOPENIA [None]
  - NEUTROPENIA [None]
  - SYSTEMIC MYCOSIS [None]
